FAERS Safety Report 4475895-6 (Version None)
Quarter: 2004Q4

REPORT INFORMATION
  Report Type: 
  Country: None (occurrence: None)
  Receive Date: 20041015
  Receipt Date: 20040930
  Transmission Date: 20050328
  Serious: Yes (Hospitalization)
  Sender: FDA-Public Use
  Company Number: US-AMGEN-US095481

PATIENT
  Sex: Male
  Weight: 95.7 kg

DRUGS (1)
  1. ETANERCEPT [Suspect]
     Indication: GRAFT VERSUS HOST DISEASE
     Dates: start: 20040814

REACTIONS (2)
  - BONE MARROW TRANSPLANT [None]
  - CELLULITIS [None]
